FAERS Safety Report 5235720-2 (Version None)
Quarter: 2007Q1

REPORT INFORMATION
  Report Type: 
  Country: None (occurrence: None)
  Receive Date: 20070212
  Receipt Date: 20070201
  Transmission Date: 20070707
  Serious: Yes (Hospitalization)
  Sender: FDA-Public Use
  Company Number: FR-JNJFOC-20070200437

PATIENT
  Age: 60 Year
  Sex: Male
  Weight: 65 kg

DRUGS (11)
  1. REMICADE [Suspect]
     Dosage: FOURTH INFUSION
     Route: 042
  2. REMICADE [Suspect]
     Dosage: THIRD INFUSION
     Route: 042
  3. REMICADE [Suspect]
     Dosage: SECOND INFUSION
     Route: 042
  4. REMICADE [Suspect]
     Indication: POLYCHONDRITIS
     Dosage: FIRST INFUSION
     Route: 042
  5. CORTANCYL [Concomitant]
     Route: 065
  6. PLAQUENIL [Concomitant]
     Route: 065
  7. DIFFU-K [Concomitant]
     Route: 065
  8. CALCIUM [Concomitant]
     Route: 065
  9. NEXIUM [Concomitant]
     Route: 065
  10. CONTRAMAL [Concomitant]
     Route: 065
  11. RIVOTRIL [Concomitant]
     Route: 065

REACTIONS (3)
  - ACUTE FEBRILE NEUTROPHILIC DERMATOSIS [None]
  - PYREXIA [None]
  - RASH PAPULAR [None]
